FAERS Safety Report 6617684-X (Version None)
Quarter: 2010Q1

REPORT INFORMATION
  Report Type: 
  Country: None (occurrence: None)
  Receive Date: 20100308
  Receipt Date: 20100222
  Transmission Date: 20100710
  Serious: Yes (Other)
  Sender: FDA-Public Use
  Company Number: PHHY2010US10759

PATIENT
  Sex: Male

DRUGS (1)
  1. CLOZARIL [Suspect]
     Indication: SCHIZOPHRENIA
     Dosage: 125, EVERY NIGHT
     Route: 048

REACTIONS (3)
  - HAEMORRHAGE [None]
  - MYOCARDIAL INFARCTION [None]
  - SYNCOPE [None]
